FAERS Safety Report 14910471 (Version 1)
Quarter: 2018Q2

REPORT INFORMATION
  Report Type: Spontaneous
  Country: US (occurrence: US)
  Receive Date: 20180517
  Receipt Date: 20180517
  Transmission Date: 20180711
  Serious: No
  Sender: FDA-Public Use
  Company Number: US-009507513-1805USA006738

PATIENT
  Sex: Male

DRUGS (1)
  1. PROVENTIL [Suspect]
     Active Substance: ALBUTEROL
     Dosage: 2 PUFF BY MOUTH EVERY 4 HOURS
     Route: 055

REACTIONS (3)
  - Dysgeusia [Unknown]
  - Poor quality device used [Unknown]
  - Product container issue [Not Recovered/Not Resolved]
